FAERS Safety Report 6924155-X (Version None)
Quarter: 2010Q3

REPORT INFORMATION
  Report Type: 
  Country: None (occurrence: None)
  Receive Date: 20100813
  Receipt Date: 20100804
  Transmission Date: 20110219
  Serious: Yes (Hospitalization)
  Sender: FDA-Public Use
  Company Number: US-VALEANT-2010VX001234

PATIENT
  Age: 65 Year
  Sex: Female

DRUGS (4)
  1. DIHYDROERGOTAMINE MESYLATE [Suspect]
     Indication: PRODUCT USED FOR UNKNOWN INDICATION
     Route: 048
     Dates: start: 20040523, end: 20040607
  2. NORSET [Suspect]
     Indication: MAJOR DEPRESSION
     Route: 048
     Dates: start: 20040608, end: 20040613
  3. LYSANXIA [Suspect]
     Indication: PRODUCT USED FOR UNKNOWN INDICATION
     Route: 048
     Dates: start: 20040519, end: 20040613
  4. EFFEXOR [Suspect]
     Indication: PRODUCT USED FOR UNKNOWN INDICATION
     Route: 048
     Dates: start: 20040507, end: 20040510

REACTIONS (4)
  - ANTIBODY TEST POSITIVE [None]
  - HEPATITIS A [None]
  - HEPATITIS A ANTIBODY POSITIVE [None]
  - MAJOR DEPRESSION [None]
